FAERS Safety Report 25532073 (Version 1)
Quarter: 2025Q3

REPORT INFORMATION
  Report Type: Report from Study
  Country: JP (occurrence: JP)
  Receive Date: 20250709
  Receipt Date: 20250709
  Transmission Date: 20251021
  Serious: Yes (Other)
  Sender: NOVARTIS
  Company Number: JP-002147023-NVSC2022JP291417

PATIENT
  Age: 59 Year
  Sex: Male
  Weight: 64.6 kg

DRUGS (16)
  1. LUTATHERA [Suspect]
     Active Substance: LUTETIUM OXODOTREOTIDE LU-177
     Indication: Pancreatic neuroendocrine tumour
     Route: 042
     Dates: start: 20220616, end: 20220616
  2. LUTATHERA [Suspect]
     Active Substance: LUTETIUM OXODOTREOTIDE LU-177
     Route: 042
     Dates: start: 20220908, end: 20220908
  3. LUTATHERA [Suspect]
     Active Substance: LUTETIUM OXODOTREOTIDE LU-177
     Route: 042
     Dates: start: 20221110, end: 20221110
  4. LUTATHERA [Suspect]
     Active Substance: LUTETIUM OXODOTREOTIDE LU-177
     Route: 042
     Dates: start: 20230112, end: 20230112
  5. ARGININE\LYSINE [Suspect]
     Active Substance: ARGININE\LYSINE
     Indication: Product used for unknown indication
     Route: 042
     Dates: start: 20220616
  6. ARGININE\LYSINE [Suspect]
     Active Substance: ARGININE\LYSINE
     Route: 042
  7. ARGININE\LYSINE [Suspect]
     Active Substance: ARGININE\LYSINE
     Route: 042
  8. ARGININE\LYSINE [Suspect]
     Active Substance: ARGININE\LYSINE
     Route: 042
  9. KYTRIL [Concomitant]
     Active Substance: GRANISETRON HYDROCHLORIDE
     Indication: Prophylaxis of nausea and vomiting
     Route: 065
  10. KYTRIL [Concomitant]
     Active Substance: GRANISETRON HYDROCHLORIDE
     Route: 065
  11. KYTRIL [Concomitant]
     Active Substance: GRANISETRON HYDROCHLORIDE
     Route: 065
  12. KYTRIL [Concomitant]
     Active Substance: GRANISETRON HYDROCHLORIDE
     Route: 065
  13. LANREOTIDE ACETATE [Concomitant]
     Active Substance: LANREOTIDE ACETATE
     Indication: Pancreatic neuroendocrine tumour
     Route: 065
     Dates: start: 20230612, end: 20230612
  14. OCTREOTIDE ACETATE [Concomitant]
     Active Substance: OCTREOTIDE ACETATE
     Indication: Pancreatic neuroendocrine tumour
     Route: 065
     Dates: start: 20230601, end: 20240209
  15. ZANOSAR [Concomitant]
     Active Substance: STREPTOZOCIN
     Indication: Pancreatic neuroendocrine tumour
     Route: 065
     Dates: start: 20230920, end: 20231105
  16. FLUOROURACIL [Concomitant]
     Active Substance: FLUOROURACIL
     Indication: Pancreatic neuroendocrine tumour
     Route: 065
     Dates: start: 20230920, end: 20231105

REACTIONS (9)
  - Anaemia [Recovered/Resolved with Sequelae]
  - Myelosuppression [Recovered/Resolved]
  - Lymphocyte count decreased [Recovered/Resolved]
  - Monocyte count increased [Not Recovered/Not Resolved]
  - Glomerular filtration rate decreased [Recovering/Resolving]
  - Blood pressure systolic increased [Unknown]
  - Blood pressure diastolic increased [Unknown]
  - Inappropriate schedule of product administration [Unknown]
  - Drug clearance decreased [Unknown]

NARRATIVE: CASE EVENT DATE: 20220728
